FAERS Safety Report 15843166 (Version 1)
Quarter: 2018Q4

REPORT INFORMATION
  Report Type: Spontaneous
  Country: US (occurrence: US)
  Receive Date: 20181224
  Receipt Date: 20181224
  Transmission Date: 20190205
  Serious: Yes (Hospitalization)
  Sender: FDA-Public Use
  Company Number: None

PATIENT
  Age: 75 Year
  Sex: Male

DRUGS (2)
  1. DEXAMETHASONE. [Suspect]
     Active Substance: DEXAMETHASONE
     Indication: METASTASES TO CENTRAL NERVOUS SYSTEM
     Route: 048
     Dates: start: 20181109, end: 20181129
  2. CARVEDILOL. [Suspect]
     Active Substance: CARVEDILOL
     Indication: CARDIAC FAILURE CONGESTIVE
     Dosage: ?          OTHER DOSE:12.5MG;?
     Route: 048
     Dates: start: 20160505

REACTIONS (6)
  - Dizziness [None]
  - Confusional state [None]
  - Polyuria [None]
  - Hypotension [None]
  - Adrenal insufficiency [None]
  - Hypovolaemia [None]

NARRATIVE: CASE EVENT DATE: 20181206
